FAERS Safety Report 5880313-7 (Version None)
Quarter: 2008Q3

REPORT INFORMATION
  Report Type: 
  Country: None (occurrence: None)
  Receive Date: 20080912
  Receipt Date: 20080909
  Transmission Date: 20090109
  Serious: Yes (Death, Other)
  Sender: FDA-Public Use
  Company Number: PHHY2008JP18732

PATIENT
  Sex: Male
  Weight: 49 kg

DRUGS (7)
  1. ZOMETA [Suspect]
     Indication: METASTASES TO BONE
     Dosage: 4 MG, APPOXIMATELY EVERY 3 WEEKS
     Route: 042
     Dates: start: 20060613, end: 20070315
  2. INTERFERON ALFA [Concomitant]
     Dosage: 300X104U, 3 TIMES A WEEK
     Dates: start: 20060418
  3. INCADRONIC ACID [Concomitant]
     Dosage: 5 MG ONCE A WEEK
     Dates: start: 20060418
  4. PICIBANIL [Concomitant]
     Dosage: UNK
     Dates: start: 20060530
  5. THALIDOMIDE [Concomitant]
     Dosage: 100MG/DAY
  6. PROLEUKIN [Concomitant]
     Dosage: 70X10^4U, ONCE A WEEK
  7. CALCIUM [Concomitant]
     Route: 042

REACTIONS (8)
  - BLOOD ALBUMIN DECREASED [None]
  - CONDITION AGGRAVATED [None]
  - HICCUPS [None]
  - HYPOCALCAEMIA [None]
  - MALIGNANT NEOPLASM PROGRESSION [None]
  - NEOPLASM PROGRESSION [None]
  - PROTEIN TOTAL DECREASED [None]
  - TETANY [None]
